FAERS Safety Report 19501491 (Version 2)
Quarter: 2021Q3

REPORT INFORMATION
  Report Type: Report from Study
  Country: JP (occurrence: JP)
  Receive Date: 20210707
  Receipt Date: 20210709
  Transmission Date: 20211014
  Serious: Yes (Hospitalization)
  Sender: FDA-Public Use
  Company Number: JP-CELGENEUS-JPN-20210608212

PATIENT
  Age: 77 Year
  Sex: Female
  Weight: 57.2 kg

DRUGS (22)
  1. PEMBROLIZUMAB (MK?3475) [Suspect]
     Active Substance: PEMBROLIZUMAB
     Indication: TRIPLE NEGATIVE BREAST CANCER
     Dosage: 200 MILLIGRAM
     Route: 042
     Dates: start: 20200624, end: 20210511
  2. PEMBROLIZUMAB (MK?3475) [Suspect]
     Active Substance: PEMBROLIZUMAB
     Dosage: 200 MILLIGRAM
     Route: 042
     Dates: start: 20210602, end: 20210602
  3. GEMCITABINE. [Suspect]
     Active Substance: GEMCITABINE
     Indication: TRIPLE NEGATIVE BREAST CANCER
     Dosage: 1000 MILLIGRAM/SQ. METER, CYCLICAL (ON DAYS 1 AND 8 EVERY 21 DAYS)
     Route: 042
     Dates: start: 20200701, end: 20210511
  4. ENTEROCOCCUS FAECALIS [Concomitant]
     Active Substance: ENTEROCOCCUS FAECALIS
     Indication: CONSTIPATION
     Dosage: 250 MILLIGRAM
     Route: 048
     Dates: start: 20171019
  5. HEPARINOID [Concomitant]
     Active Substance: CHONDROITIN SULFATE (BOVINE)
     Indication: FATIGUE
     Route: 061
     Dates: start: 20190620
  6. LOXOPROFEN SODIUM [Concomitant]
     Active Substance: LOXOPROFEN SODIUM
     Indication: ARTHRALGIA
     Route: 061
  7. PROSTANDIN ( ALPROSTADIL ALFADEX) [Concomitant]
     Indication: SURGERY
     Route: 065
     Dates: start: 20201104
  8. CARBOPLATIN. [Suspect]
     Active Substance: CARBOPLATIN
     Indication: TRIPLE NEGATIVE BREAST CANCER
     Dosage: AREA UNDER THE CURVE (AUC) 2, CYCLICAL (ON DAYS 1 AND 8 EVERY 21 DAYS)
     Route: 042
     Dates: start: 20200701, end: 20210511
  9. MAGNESIUM OXIDE. [Concomitant]
     Active Substance: MAGNESIUM OXIDE
     Indication: DRY SKIN
     Route: 061
     Dates: start: 20171019
  10. CARBOPLATIN. [Suspect]
     Active Substance: CARBOPLATIN
     Dosage: AREA UNDER THE CURVE (AUC) 2, CYCLICAL (ON DAYS 1 AND 8 EVERY 21 DAYS)
     Route: 042
     Dates: start: 20210602, end: 20210602
  11. HYDROCORTISONE. [Concomitant]
     Active Substance: HYDROCORTISONE
     Indication: HYPERTENSION
     Dosage: 2.5 MILLIGRAM
     Route: 048
     Dates: start: 20200615, end: 20210628
  12. SARS?COV?2 [Concomitant]
     Active Substance: SARS-COV-2
     Indication: COVID-19 PROPHYLAXIS
     Dosage: UNKNOWN; ONCE
     Route: 030
     Dates: start: 20210621
  13. ABRAXANE [Suspect]
     Active Substance: PACLITAXEL
     Indication: TRIPLE NEGATIVE BREAST CANCER
     Dosage: 100 MG/M2, CYCLICAL (ON DAYS 1, 8  AND 15 EVERY 28 DAYS)
     Route: 042
  14. PACLITAXEL. [Suspect]
     Active Substance: PACLITAXEL
     Indication: TRIPLE NEGATIVE BREAST CANCER
     Dosage: 90 MG/M2, CYCLICAL (ON DAYS 1, 8  AND 15 EVERY 28 DAYS)
     Route: 065
  15. LUNESTA [Concomitant]
     Active Substance: ESZOPICLONE
     Indication: INSOMNIA
     Route: 065
     Dates: start: 20201103
  16. CORTRIL (HYDROCORTISONE) [Concomitant]
     Indication: HORMONE REPLACEMENT THERAPY
     Dosage: 30 MILLIGRAM
     Route: 048
     Dates: start: 20200229, end: 20210625
  17. GENTAMICIN SULFATE. [Concomitant]
     Active Substance: GENTAMICIN SULFATE
     Indication: PRODUCT USED FOR UNKNOWN INDICATION
     Route: 065
  18. URSODIOL. [Concomitant]
     Active Substance: URSODIOL
     Indication: HEPATIC FUNCTION ABNORMAL
     Route: 065
     Dates: start: 20210224
  19. GEMCITABINE. [Suspect]
     Active Substance: GEMCITABINE
     Dosage: 1000 MILLIGRAM/SQ. METER, CYCLICAL (ON DAYS 1 AND 8 EVERY 21 DAYS)
     Route: 042
     Dates: start: 20210602, end: 20210602
  20. BIOFERMIN R [Concomitant]
     Active Substance: DIETARY SUPPLEMENT\PROBIOTICS
     Indication: CONSTIPATION
     Route: 048
     Dates: start: 20171019
  21. AMLODIPINE [Concomitant]
     Active Substance: AMLODIPINE BESYLATE
     Indication: PRODUCT USED FOR UNKNOWN INDICATION
     Route: 065
  22. GENTACIN [Concomitant]
     Active Substance: GENTAMICIN SULFATE
     Indication: PROSTATITIS
     Route: 065
     Dates: start: 20200121

REACTIONS (1)
  - Adrenal insufficiency [Not Recovered/Not Resolved]

NARRATIVE: CASE EVENT DATE: 20210622
